FAERS Safety Report 9835914 (Version 1)
Quarter: 2014Q1

REPORT INFORMATION
  Report Type: Report from Study
  Country: US (occurrence: US)
  Receive Date: 20140122
  Receipt Date: 20140122
  Transmission Date: 20141002
  Serious: Yes (Death)
  Sender: FDA-Public Use
  Company Number: GXBR2014US000528

PATIENT
  Age: 55 Year
  Sex: Male

DRUGS (1)
  1. ENOXAPARIN SODIUM [Suspect]
     Dosage: 100 MG, QD
     Route: 058
     Dates: start: 201308

REACTIONS (1)
  - Oncologic complication [Fatal]
